FAERS Safety Report 20968949 (Version 1)
Quarter: 2022Q2

REPORT INFORMATION
  Report Type: Spontaneous
  Country: US (occurrence: None)
  Receive Date: 20220616
  Receipt Date: 20220616
  Transmission Date: 20220721
  Serious: No
  Sender: FDA-Public Use
  Company Number: None

PATIENT
  Age: 65 Year
  Sex: Male

DRUGS (1)
  1. TERIPARATIDE [Suspect]
     Active Substance: TERIPARATIDE
     Indication: Senile osteoporosis
     Dosage: 20MCG (0.08M DAILY SUBCUTANEOUS?
     Route: 058
     Dates: start: 202202

REACTIONS (2)
  - Hip surgery [None]
  - Therapy interrupted [None]

NARRATIVE: CASE EVENT DATE: 20220502
